FAERS Safety Report 23516727 (Version 2)
Quarter: 2024Q1

REPORT INFORMATION
  Report Type: Report from Study
  Country: ES (occurrence: ES)
  Receive Date: 20240213
  Receipt Date: 20240316
  Transmission Date: 20240410
  Serious: Yes (Hospitalization)
  Sender: FDA-Public Use
  Company Number: ES-TEVA-2022-ES-2823464

PATIENT
  Age: 77 Year
  Sex: Male
  Weight: 65 kg

DRUGS (6)
  1. OXALIPLATIN [Suspect]
     Active Substance: OXALIPLATIN
     Indication: Colorectal cancer
     Dosage: DOSAGE TEXT: 151.98 MG EVRY 2 WEEKS
     Route: 042
     Dates: start: 20210811
  2. FLUOROURACIL [Suspect]
     Active Substance: FLUOROURACIL
     Indication: Colorectal cancer
     Dosage: DOSAGE TEXT: 4291.2 MG 1 EVRY 2 WEEKS
     Route: 042
     Dates: start: 20210811
  3. FLUOROURACIL [Suspect]
     Active Substance: FLUOROURACIL
     Indication: Colorectal cancer
     Dosage: 715.2 MG, EVERY 2 WEEKS
     Route: 040
     Dates: start: 20210811
  4. LEUCOVORIN CALCIUM [Suspect]
     Active Substance: LEUCOVORIN CALCIUM
     Indication: Colorectal cancer
     Dosage: DOSAGE TEXT: 715.2 MG  1 EVRY 2 WEEKS
     Route: 042
     Dates: start: 20210811
  5. ENCORAFENIB [Suspect]
     Active Substance: ENCORAFENIB
     Indication: Colorectal cancer
     Dosage: 28-DAY CYCLE
     Route: 048
     Dates: start: 20210811, end: 20211012
  6. CETUXIMAB [Suspect]
     Active Substance: CETUXIMAB
     Indication: Colorectal cancer
     Dosage: DOSAGE TEXT: 894 MG 1 EVERY 2 WEEKS
     Route: 042
     Dates: start: 20210811

REACTIONS (1)
  - Enteritis [Recovered/Resolved]

NARRATIVE: CASE EVENT DATE: 20211011
